FAERS Safety Report 4478161-8 (Version None)
Quarter: 2004Q4

REPORT INFORMATION
  Report Type: 
  Country: None (occurrence: None)
  Receive Date: 20041019
  Receipt Date: 20041006
  Transmission Date: 20050328
  Serious: Yes (Hospitalization)
  Sender: FDA-Public Use
  Company Number: GB-JNJFOC-20040902421

PATIENT
  Sex: Female

DRUGS (9)
  1. REMICADE [Suspect]
     Indication: RHEUMATOID ARTHRITIS
     Dosage: INCREASED 300MG TO 320MG
     Route: 042
  2. RANITIDINE [Concomitant]
  3. TRAMADOL HCL [Concomitant]
  4. CALCICHEW [Concomitant]
  5. DICLOFENAC [Concomitant]
  6. CO-PROXAMOL [Concomitant]
  7. CO-PROXAMOL [Concomitant]
  8. INSULIN [Concomitant]
  9. METHOTREXATE [Concomitant]
     Dosage: DISCONTINUED 4 - 5 MONTHS AGO.

REACTIONS (2)
  - HEPATIC FIBROSIS [None]
  - HEPATOMEGALY [None]
